FAERS Safety Report 23680847 (Version 1)
Quarter: 2024Q1

REPORT INFORMATION
  Report Type: Spontaneous
  Country: US (occurrence: US)
  Receive Date: 20240328
  Receipt Date: 20240328
  Transmission Date: 20240410
  Serious: No
  Sender: FDA-Public Use
  Company Number: US-PRINSTON PHARMACEUTICAL INC.-2023PRN00538

PATIENT
  Age: 76 Year
  Sex: Female
  Weight: 92.517 kg

DRUGS (16)
  1. BENAZEPRIL HYDROCHLORIDE [Suspect]
     Active Substance: BENAZEPRIL HYDROCHLORIDE
     Indication: Hypertension
     Dosage: 20 MG, 1X/DAY (ALONG WITH 10 MG FOR A TOTAL DAILY DOSE OF 30 MG)
     Route: 048
     Dates: start: 20231008
  2. BENAZEPRIL [Suspect]
     Active Substance: BENAZEPRIL HYDROCHLORIDE
     Indication: Hypertension
     Dosage: 10 MG, 1X/DAY (ALONG WITH 20 MG FOR A TOTAL DAILY DOSE OF 30 MG),
     Route: 048
     Dates: start: 202306
  3. SYNTHROID [Concomitant]
     Active Substance: LEVOTHYROXINE SODIUM
     Dosage: 88 MG, 1X/DAY, IN THE MORNING
  4. VITAMIN B COMPLEX [Concomitant]
     Active Substance: CYANOCOBALAMIN\DEXPANTHENOL\NIACINAMIDE\PYRIDOXINE HYDROCHLORIDE\RIBOFLAVIN 5^-PHOSPHATE SODIUM\THIA
     Dosage: UNK, 1X/DAY
  5. VITAMIN D3 [Concomitant]
     Active Substance: CHOLECALCIFEROL
     Dosage: 200 MG, 1X/DAY
  6. COENZYME Q10 [Concomitant]
     Active Substance: DIETARY SUPPLEMENT\UBIDECARENONE
     Dosage: 300 MG, 1X/DAY
  7. ZINC [Concomitant]
     Active Substance: PYRITHIONE ZINC\ZINC\ZINC CHLORIDE
     Dosage: 100 MG, 1X/DAY
  8. KRILL OIL [Concomitant]
     Active Substance: DIETARY SUPPLEMENT\KRILL OIL
     Dosage: 500 MG, 1X/DAY
  9. DIETARY SUPPLEMENT\RESVERATROL [Concomitant]
     Active Substance: DIETARY SUPPLEMENT\RESVERATROL
     Dosage: 100 MG, 1X/DAY
  10. KIRKLAND SIGNATURE TRIPLE ACTION JOINT HEALTH [Concomitant]
     Dosage: UNK, 1X/DAY
  11. TART CHERRY [Concomitant]
     Dosage: 1000 MG, 1X/DAY
  12. STRESS [Concomitant]
     Dosage: UNK, 1X/DAY
  13. CRANBERRY 36 OPC [Concomitant]
     Dosage: 2 TABLETS, 1X/DAY
  14. DIETARY SUPPLEMENT [Concomitant]
     Active Substance: DIETARY SUPPLEMENT
     Dosage: 2 TABLETS, 1X/DAY
  15. PROBIOTICS NOS [Concomitant]
     Active Substance: PROBIOTICS NOS
     Dosage: UNK, 1X/DAY
  16. SUPERBEETS [BETA VULGARIS;MAGNESIUM ASCORBATE;MALIC ACID] [Concomitant]
     Dosage: 2 TABLETS, 1X/DAY

REACTIONS (4)
  - Blood pressure fluctuation [Not Recovered/Not Resolved]
  - Blood pressure increased [Not Recovered/Not Resolved]
  - Drug ineffective [Not Recovered/Not Resolved]
  - Product substitution issue [Not Recovered/Not Resolved]

NARRATIVE: CASE EVENT DATE: 20231008
